FAERS Safety Report 16085715 (Version 1)
Quarter: 2019Q1

REPORT INFORMATION
  Report Type: Spontaneous
  Country: GB (occurrence: GB)
  Receive Date: 20190318
  Receipt Date: 20190318
  Transmission Date: 20190418
  Serious: Yes (Other)
  Sender: FDA-Public Use
  Company Number: GB-PFIZER INC-2019111108

PATIENT
  Age: 74 Year
  Sex: Female
  Weight: 78.46 kg

DRUGS (13)
  1. COLECALCIFEROL [Concomitant]
     Active Substance: CHOLECALCIFEROL
     Dosage: UNK (SMALL DOSE)
  2. OMEPRAZOLE. [Concomitant]
     Active Substance: OMEPRAZOLE
     Dosage: 20 MG, 1X/DAY (PREVIOUSLY 10MG DAILY)
  3. VITAMIN B12 + FOLIC ACID [Concomitant]
     Dosage: UNK
  4. DOXYCYCLINE MONOHYDRATE [Suspect]
     Active Substance: DOXYCYCLINE
     Indication: SINUSITIS
     Dosage: 200MG IMMEDIATELY THEN 100MG PER DAY FOR NEXT 6 DAYS.
     Route: 048
     Dates: start: 20190207, end: 20190209
  5. RETINOL [Concomitant]
     Active Substance: RETINOL
     Dosage: UNK
  6. EVENING PRIMROSE OIL [Concomitant]
     Active Substance: EVENING PRIMROSE OIL\HERBALS
     Dosage: UNK
  7. VITAMIN A [RETINOL] [Concomitant]
     Dosage: UNK
  8. ASCORBIC ACID. [Concomitant]
     Active Substance: ASCORBIC ACID
     Dosage: UNK
  9. ALPHA-TOCOPHEROL SUCCINATE, D- [Concomitant]
  10. VITAMIN E [TOCOPHERYL ACID SUCCINATE] [Concomitant]
     Dosage: UNK
  11. OMEPRAZOLE. [Concomitant]
     Active Substance: OMEPRAZOLE
     Indication: HIATUS HERNIA
     Dosage: 10 MG, DAILY
  12. SELENIUM [Concomitant]
     Active Substance: SELENIUM
     Dosage: UNK
  13. LEVOTHYROXINE. [Concomitant]
     Active Substance: LEVOTHYROXINE
     Dosage: 100 UG, UNK

REACTIONS (3)
  - Condition aggravated [Not Recovered/Not Resolved]
  - Oesophageal discomfort [Not Recovered/Not Resolved]
  - Dyspepsia [Not Recovered/Not Resolved]

NARRATIVE: CASE EVENT DATE: 20190209
